FAERS Safety Report 8973644 (Version 1)
Quarter: 2012Q4

REPORT INFORMATION
  Report Type: 
  Country: US (occurrence: US)
  Receive Date: 20121218
  Receipt Date: 20121218
  Transmission Date: 20130627
  Serious: Yes (Other)
  Sender: FDA-Public Use
  Company Number: US-BRISTOL-MYERS SQUIBB COMPANY-16906216

PATIENT
  Age: 65 Year
  Sex: Male
  Weight: 142.85 kg

DRUGS (2)
  1. ABILIFY [Suspect]
     Indication: DEPRESSION
     Route: 048
     Dates: start: 20120625, end: 20120827
  2. WELLBUTRIN SR [Suspect]

REACTIONS (2)
  - Weight increased [Unknown]
  - Cough [Unknown]
